FAERS Safety Report 16258239 (Version 1)
Quarter: 2019Q2

REPORT INFORMATION
  Report Type: Other
  Country: FR (occurrence: FR)
  Receive Date: 20190430
  Receipt Date: 20190430
  Transmission Date: 20190711
  Serious: Yes (Other)
  Sender: FDA-Public Use
  Company Number: FR-GE HEALTHCARE-OMPQ-PR-1608S-1546

PATIENT
  Age: 87 Year
  Sex: Female

DRUGS (15)
  1. PANTOPRAZOLE [Suspect]
     Active Substance: PANTOPRAZOLE
     Route: 048
  2. OMNIPAQUE [Suspect]
     Active Substance: IOHEXOL
     Indication: COMPUTERISED TOMOGRAM PELVIS
  3. TENORMINE [Concomitant]
     Active Substance: ATENOLOL
     Dosage: UNK
  4. PARACETAMOL [Concomitant]
     Active Substance: ACETAMINOPHEN
     Dosage: UNK
  5. NATIVELLE [Concomitant]
     Dosage: 0.125 MG, UNK
     Dates: start: 20160716
  6. PANTOPRAZOLE [Suspect]
     Active Substance: PANTOPRAZOLE
     Indication: GASTROOESOPHAGEAL REFLUX DISEASE
     Dosage: UNK
     Route: 048
     Dates: start: 20160727, end: 20160801
  7. METEOSPASMYL [Concomitant]
  8. OMNIPAQUE [Suspect]
     Active Substance: IOHEXOL
     Indication: PRODUCT USED FOR UNKNOWN INDICATION
  9. PASSIFLORE [Concomitant]
  10. LOVENOX [Concomitant]
     Active Substance: ENOXAPARIN SODIUM
     Indication: ARRHYTHMIA
     Dosage: UNK UNK, BID
     Dates: start: 20160711
  11. OMNIPAQUE [Suspect]
     Active Substance: IOHEXOL
     Indication: COMPUTERISED TOMOGRAM ABDOMEN
  12. CORDARONE [Suspect]
     Active Substance: AMIODARONE HYDROCHLORIDE
     Indication: TACHYCARDIA
     Dosage: 200 MG, TABLET BREAKABLE
     Route: 048
     Dates: start: 20160717, end: 20160724
  13. HEMIGOXINE [Suspect]
     Active Substance: DIGOXIN
     Indication: TACHYCARDIA
     Dosage: 0.13 MG, UNK
     Route: 048
     Dates: start: 20160716, end: 20160727
  14. KENZEN [Concomitant]
     Active Substance: CANDESARTAN
     Dosage: UNK
  15. OMNIPAQUE [Suspect]
     Active Substance: IOHEXOL
     Indication: COMPUTERISED TOMOGRAM THORAX
     Dosage: 350 MG, SINGLE
     Route: 042
     Dates: start: 20160729, end: 20160729

REACTIONS (1)
  - Drug reaction with eosinophilia and systemic symptoms [Recovered/Resolved]

NARRATIVE: CASE EVENT DATE: 20160729
